FAERS Safety Report 8963808 (Version 1)
Quarter: 2012Q4

REPORT INFORMATION
  Report Type: 
  Country: US (occurrence: US)
  Receive Date: 20121213
  Receipt Date: 20121213
  Transmission Date: 20130627
  Serious: No
  Sender: FDA-Public Use
  Company Number: US-B.I. PHARMACEUTICALS,INC./RIDGEFIELD-2012-BI-02692BP

PATIENT
  Sex: Male

DRUGS (1)
  1. ZANTAC COOL MINT (TABLETS) [Suspect]
     Indication: DYSPEPSIA
     Route: 048
     Dates: start: 201212, end: 201212

REACTIONS (2)
  - Throat irritation [Recovered/Resolved]
  - Dyspepsia [Recovered/Resolved]
